FAERS Safety Report 18555917 (Version 13)
Quarter: 2023Q2

REPORT INFORMATION
  Report Type: Spontaneous
  Country: CA (occurrence: CA)
  Receive Date: 20201127
  Receipt Date: 20230413
  Transmission Date: 20230721
  Serious: Yes (Hospitalization, Other)
  Sender: FDA-Public Use
  Company Number: CA-CELLTRION INC.-2020CA024829

PATIENT

DRUGS (14)
  1. INFLECTRA [Suspect]
     Active Substance: INFLIXIMAB-DYYB
     Indication: Rheumatoid arthritis
     Dosage: 700 MG 0, 2, 6 WEEKS, THEN EVERY 8 WEEKS
     Route: 042
  2. INFLECTRA [Suspect]
     Active Substance: INFLIXIMAB-DYYB
     Dosage: 417 MG 0, 2, 6 WEEKS, THEN EVERY 8 WEEKS/ INCLUDES INDUCTION AT WEEK 0, 2, 6 THEN EVERY 8 WEEKS
     Route: 042
     Dates: start: 20200811, end: 20210310
  3. INFLECTRA [Suspect]
     Active Substance: INFLIXIMAB-DYYB
     Dosage: 417 MG 0, 2, 6 WEEKS, THEN EVERY 8 WEEKS
     Route: 042
     Dates: start: 20200922
  4. INFLECTRA [Suspect]
     Active Substance: INFLIXIMAB-DYYB
     Dosage: 417 MG 0, 2, 6 WEEKS, THEN EVERY 8 WEEKS
     Route: 042
     Dates: start: 20201118
  5. INFLECTRA [Suspect]
     Active Substance: INFLIXIMAB-DYYB
     Dosage: 675 MG ,RE-INDUCTION AT WK 0, 2 AND 6, THEN EVERY 8 WKS, 417 MG RECEIV ON 27APR21
     Route: 042
     Dates: start: 20210427, end: 20220830
  6. INFLECTRA [Suspect]
     Active Substance: INFLIXIMAB-DYYB
     Dosage: 417 MG 0, 2, 6 WEEKS, THEN EVERY 8 WEEKS/WEEK 0
     Route: 042
     Dates: start: 20210427
  7. INFLECTRA [Suspect]
     Active Substance: INFLIXIMAB-DYYB
     Dosage: 417 MG 0, 2, 6 WEEKS, THEN EVERY 8 WEEKS/WEEK 0
     Route: 042
     Dates: start: 20211122
  8. INFLECTRA [Suspect]
     Active Substance: INFLIXIMAB-DYYB
     Dosage: 675 MG, RE-INDUCTION AT WK 0, 2 AND 6, THEN EVERY 8 WKS
     Route: 042
     Dates: start: 20221012
  9. INFLECTRA [Suspect]
     Active Substance: INFLIXIMAB-DYYB
     Dosage: 675 MG,EVERY 6 WEEKS
     Route: 042
     Dates: start: 20221012, end: 20221123
  10. INFLECTRA [Suspect]
     Active Substance: INFLIXIMAB-DYYB
     Dosage: 675 MG, RE-INDUCTION AT WK 0, 2 AND 6, THEN EVERY 8 WKS
     Route: 042
     Dates: start: 20221123
  11. INFLECTRA [Suspect]
     Active Substance: INFLIXIMAB-DYYB
     Dosage: 650 MG,REINDUCTION W0,2,6 THEN Q6 WEEKS (650MG, WEEK 0 REINDUCTION)
     Route: 042
     Dates: start: 20230405
  12. METHOTREXATE [Concomitant]
     Active Substance: METHOTREXATE
     Dosage: 1 DF (MORE THAN 20 MG, FREQUENCY UNKNOWN)
     Route: 065
     Dates: start: 202002, end: 2020
  13. METHOTREXATE [Concomitant]
     Active Substance: METHOTREXATE
     Dosage: 20 MG, WEEKLY
     Route: 065
     Dates: start: 202009
  14. SULFASALAZINE [Concomitant]
     Active Substance: SULFASALAZINE
     Dosage: 1 G, 2X/DAY
     Route: 048
     Dates: start: 202003

REACTIONS (16)
  - Psychiatric decompensation [Unknown]
  - Abdominal pain [Unknown]
  - Pancreatitis [Unknown]
  - Lymphoma [Not Recovered/Not Resolved]
  - Drug ineffective [Unknown]
  - Incorrect dose administered [Unknown]
  - Off label use [Unknown]
  - Off label use [Unknown]
  - Hyperhidrosis [Unknown]
  - Synovial cyst [Unknown]
  - Abdominal tenderness [Unknown]
  - Abdominal discomfort [Unknown]
  - Hepatic enzyme increased [Unknown]
  - Fatigue [Not Recovered/Not Resolved]
  - Condition aggravated [Not Recovered/Not Resolved]
  - COVID-19 [Recovered/Resolved]

NARRATIVE: CASE EVENT DATE: 20201118
